FAERS Safety Report 23106736 (Version 1)
Quarter: 2023Q4

REPORT INFORMATION
  Report Type: Spontaneous
  Country: US (occurrence: US)
  Receive Date: 20231026
  Receipt Date: 20231026
  Transmission Date: 20240109
  Serious: Yes (Life-Threatening, Hospitalization, Other)
  Sender: FDA-Public Use
  Company Number: US-MLMSERVICE-20231010-4588524-1

PATIENT

DRUGS (1)
  1. ALBUTEROL [Suspect]
     Active Substance: ALBUTEROL
     Indication: Asthmatic crisis
     Dosage: UNK

REACTIONS (3)
  - Pneumothorax [Recovered/Resolved]
  - Acidosis [Recovered/Resolved]
  - Bronchospasm paradoxical [Recovered/Resolved]
